FAERS Safety Report 25504172 (Version 3)
Quarter: 2025Q3

REPORT INFORMATION
  Report Type: Report from Study
  Country: US (occurrence: US)
  Receive Date: 20250702
  Receipt Date: 20250821
  Transmission Date: 20251020
  Serious: Yes (Death, Hospitalization, Other)
  Sender: SUNOVION
  Company Number: US-SMPA-2025SPA008164

PATIENT
  Age: 85 Year
  Sex: Male

DRUGS (20)
  1. ORGOVYX [Suspect]
     Active Substance: RELUGOLIX
     Indication: Prostate cancer
     Route: 048
  2. ALLEGRA [Concomitant]
     Active Substance: FEXOFENADINE HYDROCHLORIDE
  3. AMLODIPINE [Concomitant]
     Active Substance: AMLODIPINE BESYLATE
  4. ATORVASTATIN [Concomitant]
     Active Substance: ATORVASTATIN
  5. CALCIUM [Concomitant]
     Active Substance: CALCIUM
  6. ERLEADA [Concomitant]
     Active Substance: APALUTAMIDE
  7. FINASTERIDE [Concomitant]
     Active Substance: FINASTERIDE
  8. FLOMAX [Concomitant]
     Active Substance: TAMSULOSIN HYDROCHLORIDE
  9. FLUTICASONE [Concomitant]
     Active Substance: FLUTICASONE
  10. HYDROMORPHONE [Concomitant]
     Active Substance: HYDROMORPHONE
  11. LOMOTIL [Concomitant]
     Active Substance: ATROPINE SULFATE\DIPHENOXYLATE HYDROCHLORIDE
  12. METOPROLOL TARTRATE [Concomitant]
     Active Substance: METOPROLOL TARTRATE
  13. MIRABEGRON [Concomitant]
     Active Substance: MIRABEGRON
  14. MIRALAX [Concomitant]
     Active Substance: POLYETHYLENE GLYCOL 3350
  15. OXYBUTYNIN [Concomitant]
     Active Substance: OXYBUTYNIN
  16. OXYCODONE [Concomitant]
     Active Substance: OXYCODONE
  17. SENNA TABS [Concomitant]
     Active Substance: SENNOSIDES A AND B
  18. VITAMIN C [Concomitant]
     Active Substance: ASCORBIC ACID
  19. VITAMIN D [Concomitant]
     Active Substance: VITAMIN D NOS
  20. VOLTAREN [Concomitant]
     Active Substance: DICLOFENAC SODIUM
     Route: 061

REACTIONS (3)
  - Death [Fatal]
  - Nephrostomy [Unknown]
  - Staphylococcal bacteraemia [Unknown]
